FAERS Safety Report 6046118-1 (Version None)
Quarter: 2009Q1

REPORT INFORMATION
  Report Type: 
  Country: None (occurrence: None)
  Receive Date: 20090121
  Receipt Date: 20090121
  Transmission Date: 20090719
  Serious: No
  Sender: FDA-Public Use
  Company Number: None

PATIENT
  Age: 70 Year
  Sex: Male
  Weight: 85.2762 kg

DRUGS (2)
  1. CVT-E002 (COLD-FX) - A NATURAL HEATH PRODUCT [Suspect]
     Indication: CHRONIC LYMPHOCYTIC LEUKAEMIA
     Dosage: 200 MG
     Route: 048
     Dates: start: 20081231, end: 20090106
  2. PLACEBO [Suspect]
     Dosage: PLACEBO BID PO
     Route: 048
     Dates: start: 20090112

REACTIONS (2)
  - ABDOMINAL PAIN UPPER [None]
  - VOMITING [None]
